FAERS Safety Report 9759156 (Version 1)
Quarter: 2013Q4

REPORT INFORMATION
  Report Type: Spontaneous
  Country: US (occurrence: US)
  Receive Date: 20131216
  Receipt Date: 20131216
  Transmission Date: 20140711
  Serious: Yes (Other)
  Sender: FDA-Public Use
  Company Number: US-ELI_LILLY_AND_COMPANY-US201312003815

PATIENT
  Sex: Female

DRUGS (4)
  1. PROZAC [Suspect]
     Indication: ANXIETY
     Dosage: 1 DF, UNKNOWN
     Route: 065
     Dates: start: 1995, end: 1998
  2. PROZAC [Suspect]
     Dosage: 1 DF, UNKNOWN
     Route: 065
     Dates: start: 2000, end: 2007
  3. SYNTHROID [Concomitant]
     Indication: PRODUCT USED FOR UNKNOWN INDICATION
     Dosage: 1 DF, UNKNOWN
     Route: 065
  4. ESTRADIOL [Concomitant]
     Indication: PRODUCT USED FOR UNKNOWN INDICATION
     Dosage: 1 DF, UNKNOWN
     Route: 065

REACTIONS (4)
  - Malignant melanoma [Unknown]
  - Pain in extremity [Unknown]
  - Exposure during pregnancy [Recovered/Resolved]
  - Off label use [Unknown]
